FAERS Safety Report 5408249-6 (Version None)
Quarter: 2007Q3

REPORT INFORMATION
  Report Type: 
  Country: None (occurrence: None)
  Receive Date: 20070808
  Receipt Date: 20070612
  Transmission Date: 20080115
  Serious: Yes (Other)
  Sender: FDA-Public Use
  Company Number: US-PURDUE-USA_2007_0028028

PATIENT
  Age: 35 Year
  Sex: Male
  Weight: 82 kg

DRUGS (12)
  1. OXYCONTIN [Suspect]
     Indication: PAIN
     Dosage: UNK, SEE TEXT
     Dates: start: 19990603
  2. ROXICODONE [Concomitant]
  3. METHADONE HCL [Concomitant]
  4. KRISTOLOSE [Concomitant]
  5. PARAFON FORTE [Concomitant]
  6. ABILIFY [Concomitant]
  7. KLONOPIN [Concomitant]
  8. CYMBALTA [Concomitant]
  9. DESYREL [Concomitant]
  10. CHLORAL HYDRATE [Concomitant]
  11. GABITRIL [Concomitant]
  12. CHRONULAC [Concomitant]

REACTIONS (11)
  - DRUG ABUSER [None]
  - DRUG DEPENDENCE [None]
  - EJACULATION DISORDER [None]
  - ERECTILE DYSFUNCTION [None]
  - FACIAL BONES FRACTURE [None]
  - MALE SEXUAL DYSFUNCTION [None]
  - MENTAL DISORDER [None]
  - PAIN [None]
  - PHYSICAL ASSAULT [None]
  - RESPIRATORY TRACT CONGESTION [None]
  - WHITE BLOOD CELL COUNT DECREASED [None]
